FAERS Safety Report 8479993-1 (Version None)
Quarter: 2012Q2

REPORT INFORMATION
  Report Type: 
  Country: None (occurrence: None)
  Receive Date: 20120629
  Receipt Date: 20120621
  Transmission Date: 20120825
  Serious: Yes (Other)
  Sender: FDA-Public Use
  Company Number: GB-ABBOTT-12P-167-0948556-00

PATIENT

DRUGS (2)
  1. ACITRETIN [Concomitant]
     Indication: PSORIASIS
     Dosage: CONTINUOUS
     Route: 048
     Dates: start: 20120502
  2. HUMIRA [Suspect]
     Indication: PRODUCT USED FOR UNKNOWN INDICATION
     Route: 058

REACTIONS (4)
  - DYSPNOEA [None]
  - CHEST DISCOMFORT [None]
  - SWELLING [None]
  - DEEP VEIN THROMBOSIS [None]
